FAERS Safety Report 17049878 (Version 1)
Quarter: 2019Q4

REPORT INFORMATION
  Report Type: Spontaneous
  Country: CN (occurrence: CN)
  Receive Date: 20191119
  Receipt Date: 20191119
  Transmission Date: 20200122
  Serious: Yes (Hospitalization)
  Sender: FDA-Public Use
  Company Number: CN-PFIZER INC-2019498903

PATIENT
  Age: 77 Year
  Sex: Male
  Weight: 64 kg

DRUGS (3)
  1. LIPITOR [Suspect]
     Active Substance: ATORVASTATIN CALCIUM
     Indication: DYSLIPIDAEMIA
     Dosage: 20 MG, 1X/DAY
     Route: 048
     Dates: start: 20191020, end: 20191030
  2. GLUCOSE INJECTION [Concomitant]
     Active Substance: DEXTROSE
     Indication: VEHICLE SOLUTION USE
     Dosage: 250 ML, 1X/DAY
     Route: 041
     Dates: start: 20191030, end: 20191030
  3. TIAN QING GAN MEI [Suspect]
     Active Substance: MAGNESIUM ISOGLYCYRRHIZINATE
     Indication: THERAPEUTIC PROCEDURE
     Dosage: 200 MG, 1X/DAY
     Route: 041
     Dates: start: 20191030, end: 20191030

REACTIONS (4)
  - Pyrexia [Recovered/Resolved]
  - Aspartate aminotransferase increased [Recovered/Resolved]
  - Alanine aminotransferase increased [Recovered/Resolved]
  - Pruritus [Recovered/Resolved]

NARRATIVE: CASE EVENT DATE: 20191021
